FAERS Safety Report 4278852-8 (Version None)
Quarter: 2004Q1

REPORT INFORMATION
  Report Type: 
  Country: None (occurrence: None)
  Receive Date: 20040122
  Receipt Date: 20040122
  Transmission Date: 20041129
  Serious: Yes (Other)
  Sender: FDA-Public Use
  Company Number: None

PATIENT
  Sex: Female
  Weight: 86.1834 kg

DRUGS (2)
  1. ROSUVASTATIN 40 MG ASTRA-ZENECA [Suspect]
     Indication: TYPE IIA HYPERLIPIDAEMIA
     Dosage: 40 MG ONCE DAILY ORAL
     Route: 048
     Dates: start: 20021021, end: 20030924
  2. LEVOTHYROXINE SODIUM [Concomitant]

REACTIONS (1)
  - PREGNANCY [None]
